FAERS Safety Report 17991980 (Version 1)
Quarter: 2020Q3

REPORT INFORMATION
  Report Type: Report from Study
  Country: None (occurrence: CA)
  Receive Date: 20200708
  Receipt Date: 20200708
  Transmission Date: 20201103
  Serious: Yes (Hospitalization, Other)
  Sender: FDA-Public Use
  Company Number: CA-ABBVIE-19K-028-2977487-00

PATIENT
  Age: 51 Year
  Sex: Female

DRUGS (2)
  1. CONSTELLA [Suspect]
     Active Substance: LINACLOTIDE
     Indication: GASTROENTERITIS
     Route: 048
     Dates: start: 2019
  2. HUMIRA [Suspect]
     Active Substance: ADALIMUMAB
     Indication: CROHN^S DISEASE
     Route: 058
     Dates: start: 20160601

REACTIONS (7)
  - Malaise [Recovered/Resolved]
  - White blood cell count abnormal [Recovered/Resolved]
  - Lung neoplasm malignant [Recovered/Resolved]
  - Gastroenteritis [Recovered/Resolved]
  - Off label use [Recovered/Resolved]
  - Contusion [Recovered/Resolved]
  - Dry mouth [Recovered/Resolved]

NARRATIVE: CASE EVENT DATE: 2019
